FAERS Safety Report 25145541 (Version 1)
Quarter: 2025Q2

REPORT INFORMATION
  Report Type: Spontaneous
  Country: US (occurrence: US)
  Receive Date: 20250401
  Receipt Date: 20250401
  Transmission Date: 20250717
  Serious: No
  Sender: MERCK SHARP AND DOHME
  Company Number: US-009507513-2266582

PATIENT
  Age: 68 Year
  Sex: Female

DRUGS (3)
  1. PEMBROLIZUMAB [Suspect]
     Active Substance: PEMBROLIZUMAB
     Dates: end: 20250306
  2. LENVATINIB MESYLATE [Suspect]
     Active Substance: LENVATINIB MESYLATE
     Dosage: 20 MG, QD
     Dates: start: 20241212, end: 20250301
  3. LENVATINIB MESYLATE [Suspect]
     Active Substance: LENVATINIB MESYLATE
     Dosage: 14 MG, QD
     Dates: start: 20250104, end: 20250306

REACTIONS (8)
  - Fatigue [Unknown]
  - Decreased appetite [Unknown]
  - Blood thyroid stimulating hormone increased [Unknown]
  - Heart rate increased [Recovered/Resolved]
  - Glycosylated haemoglobin increased [Unknown]
  - Diarrhoea [Unknown]
  - Asthenia [Unknown]
  - Dyspnoea [Unknown]

NARRATIVE: CASE EVENT DATE: 20250101
